FAERS Safety Report 9396802 (Version 2)
Quarter: 2013Q3

REPORT INFORMATION
  Report Type: Spontaneous
  Country: FR (occurrence: FR)
  Receive Date: 20130712
  Receipt Date: 20130807
  Transmission Date: 20140515
  Serious: Yes (Other)
  Sender: FDA-Public Use
  Company Number: FR-BRISTOL-MYERS SQUIBB COMPANY-19094887

PATIENT
  Age: 48 Year
  Sex: Male
  Weight: 62 kg

DRUGS (6)
  1. ABILIFY TABS 10 MG [Suspect]
     Indication: HYPOMANIA
     Dosage: INTUPD:24JUN13?DOS: 2MG
     Route: 048
     Dates: start: 20130617
  2. ABILIFY TABS 10 MG [Suspect]
     Indication: BIPOLAR DISORDER
     Dosage: INTUPD:24JUN13?DOS: 2MG
     Route: 048
     Dates: start: 20130617
  3. LEVOTHYROX [Concomitant]
     Indication: HYPOTHYROIDISM
     Route: 048
  4. INIPOMP [Concomitant]
     Indication: GASTRITIS
     Route: 048
  5. LEXOMIL [Concomitant]
     Indication: ANXIETY
     Route: 048
  6. SERESTA [Concomitant]
     Indication: ANXIETY
     Route: 048

REACTIONS (1)
  - Glaucoma [Recovered/Resolved]
